FAERS Safety Report 18595329 (Version 1)
Quarter: 2020Q4

REPORT INFORMATION
  Report Type: Spontaneous
  Country: US (occurrence: US)
  Receive Date: 20201209
  Receipt Date: 20201209
  Transmission Date: 20210114
  Serious: Yes (Hospitalization)
  Sender: FDA-Public Use
  Company Number: None

PATIENT
  Age: 44 Year
  Sex: Female
  Weight: 90.3 kg

DRUGS (3)
  1. OZEMPIC [Concomitant]
     Active Substance: SEMAGLUTIDE
     Dates: start: 20200527, end: 20200706
  2. METFORMIN [Concomitant]
     Active Substance: METFORMIN HYDROCHLORIDE
     Dates: start: 20200321, end: 20200706
  3. OZEMPIC [Suspect]
     Active Substance: SEMAGLUTIDE
     Indication: TYPE 2 DIABETES MELLITUS
     Dosage: ?          OTHER FREQUENCY:ONCE WEEKLY DOSE;?
     Route: 058
     Dates: start: 20200527, end: 20200706

REACTIONS (4)
  - Gastroenteritis viral [None]
  - Vomiting [None]
  - Nausea [None]
  - Electrolyte imbalance [None]

NARRATIVE: CASE EVENT DATE: 20200630
